FAERS Safety Report 4989388-0 (Version None)
Quarter: 2006Q2

REPORT INFORMATION
  Report Type: 
  Country: None (occurrence: None)
  Receive Date: 20060426
  Receipt Date: 20060407
  Transmission Date: 20061013
  Serious: Yes (Hospitalization, Other)
  Sender: FDA-Public Use
  Company Number: US200603006363

PATIENT
  Age: 82 Year
  Sex: Female

DRUGS (21)
  1. FORTEO [Suspect]
     Indication: OSTEOPOROSIS
     Dosage: SEE IMAGE
     Dates: start: 20050301, end: 20060201
  2. FORTEO [Suspect]
     Indication: OSTEOPOROSIS
     Dosage: SEE IMAGE
     Dates: start: 20060204
  3. FORTEO [Concomitant]
  4. SYNTHROID [Concomitant]
  5. LASIX [Concomitant]
  6. POTASSIUM CHLORIDE [Concomitant]
  7. CALTRATE      (CALCIUM CARBONATE) [Concomitant]
  8. OMEPRAZOLE [Concomitant]
  9. PREDNISONE TAB [Concomitant]
  10. ADVAIR (FLUTICASONE PROPIONATE, SALMETEROL XINAFORATE) [Concomitant]
  11. FIBERCON (POLYCARBOPHIL CALCIUM) [Concomitant]
  12. ZOCOR [Concomitant]
  13. ASPIRIN [Concomitant]
  14. MULTIVITAMINS (ASCORBIC ACID, ERGOCALCIFEROL, FOLIC ACID, NICOTINAMIDE [Concomitant]
  15. SINGULAIR [Concomitant]
  16. XANAX /USA/ (ALPRAZOLAM) [Concomitant]
  17. DARVOCET-N 100 [Concomitant]
  18. AMBIEN [Concomitant]
  19. COLACE (DOCUSATE SODIUM) [Concomitant]
  20. SPIRIVA [Concomitant]
  21. BUDESONIDE [Concomitant]

REACTIONS (13)
  - ASTHENIA [None]
  - BACK PAIN [None]
  - BUNDLE BRANCH BLOCK RIGHT [None]
  - CHRONIC OBSTRUCTIVE PULMONARY DISEASE [None]
  - DEHYDRATION [None]
  - DIZZINESS [None]
  - DYSPNOEA [None]
  - FALL [None]
  - HYPONATRAEMIA [None]
  - RENAL FAILURE CHRONIC [None]
  - SINUS ARRHYTHMIA [None]
  - UNRESPONSIVE TO VERBAL STIMULI [None]
  - WHITE BLOOD CELL COUNT INCREASED [None]
